FAERS Safety Report 11406610 (Version 1)
Quarter: 2015Q3

REPORT INFORMATION
  Report Type: Spontaneous
  Country: DE (occurrence: DE)
  Receive Date: 20150821
  Receipt Date: 20150821
  Transmission Date: 20151125
  Serious: Yes (Other)
  Sender: FDA-Public Use
  Company Number: DE-GUERBET LLC-1041287

PATIENT
  Sex: Male
  Weight: 89 kg

DRUGS (4)
  1. RAMILICH [Concomitant]
     Active Substance: RAMIPRIL
  2. HCT(HYDROCHLOROTHIAZIDE) [Concomitant]
  3. DOTAREM [Suspect]
     Active Substance: GADOTERATE MEGLUMINE
     Indication: NUCLEAR MAGNETIC RESONANCE IMAGING
     Route: 042
     Dates: start: 20150806, end: 20150806
  4. L-THYROXIN (LEVOTHYROXINE) [Concomitant]
     Active Substance: LEVOTHYROXINE

REACTIONS (6)
  - Urticaria [Recovered/Resolved]
  - Pharyngeal oedema [Recovered/Resolved]
  - Swelling face [Recovered/Resolved]
  - Erythema [Recovered/Resolved]
  - Nausea [Recovered/Resolved]
  - Throat tightness [Recovered/Resolved]

NARRATIVE: CASE EVENT DATE: 20150806
